FAERS Safety Report 18881440 (Version 3)
Quarter: 2021Q1

REPORT INFORMATION
  Report Type: Spontaneous
  Country: GR (occurrence: GR)
  Receive Date: 20210211
  Receipt Date: 20210219
  Transmission Date: 20210420
  Serious: Yes (Other)
  Sender: FDA-Public Use
  Company Number: GR-009507513-2102GRC003178

PATIENT
  Age: 63 Year
  Sex: Female
  Weight: 47 kg

DRUGS (14)
  1. XOZAL [Suspect]
     Active Substance: LEVOCETIRIZINE
     Indication: SWELLING
     Dosage: UNK
  2. XOZAL [Suspect]
     Active Substance: LEVOCETIRIZINE
     Indication: SYSTEMIC SCLERODERMA
  3. AUGMENTIN [Suspect]
     Active Substance: AMOXICILLIN\CLAVULANATE POTASSIUM
     Indication: FUNGAL INFECTION
     Dosage: UNK
  4. PROPIOCHRONE [Suspect]
     Active Substance: BETAMETHASONE DIPROPIONATE\BETAMETHASONE SODIUM PHOSPHATE
     Indication: SWELLING
     Dosage: UNK
     Dates: start: 20210120
  5. ATARAX [Suspect]
     Active Substance: HYDROXYZINE HYDROCHLORIDE
     Indication: SYSTEMIC SCLERODERMA
  6. PROPIOCHRONE [Suspect]
     Active Substance: BETAMETHASONE DIPROPIONATE\BETAMETHASONE SODIUM PHOSPHATE
     Indication: ACNE
  7. ATARAX [Suspect]
     Active Substance: HYDROXYZINE HYDROCHLORIDE
     Indication: ACNE
  8. PROPIOCHRONE [Suspect]
     Active Substance: BETAMETHASONE DIPROPIONATE\BETAMETHASONE SODIUM PHOSPHATE
     Indication: SYSTEMIC SCLERODERMA
  9. BILASTINE [Suspect]
     Active Substance: BILASTINE
     Indication: SWELLING
     Dosage: UNK, REPORTED AS BILASTINE (BILAZ)
  10. XOZAL [Suspect]
     Active Substance: LEVOCETIRIZINE
     Indication: ACNE
  11. MEDROL [Suspect]
     Active Substance: METHYLPREDNISOLONE
     Dosage: 0.4 MILLIGRAM
  12. BILASTINE [Suspect]
     Active Substance: BILASTINE
     Indication: SYSTEMIC SCLERODERMA
  13. BILASTINE [Suspect]
     Active Substance: BILASTINE
     Indication: ACNE
  14. ATARAX [Suspect]
     Active Substance: HYDROXYZINE HYDROCHLORIDE
     Indication: SWELLING
     Dosage: UNK

REACTIONS (21)
  - Erythema [Not Recovered/Not Resolved]
  - Dizziness [Not Recovered/Not Resolved]
  - Vomiting [Not Recovered/Not Resolved]
  - Insomnia [Not Recovered/Not Resolved]
  - Swelling [Not Recovered/Not Resolved]
  - Memory impairment [Not Recovered/Not Resolved]
  - Muscular weakness [Not Recovered/Not Resolved]
  - Burning sensation [Not Recovered/Not Resolved]
  - Mood altered [Not Recovered/Not Resolved]
  - Constipation [Recovered/Resolved]
  - Myosclerosis [Not Recovered/Not Resolved]
  - Decreased appetite [Not Recovered/Not Resolved]
  - Inflammation [Not Recovered/Not Resolved]
  - Anxiety [Not Recovered/Not Resolved]
  - Headache [Not Recovered/Not Resolved]
  - Dyspnoea [Not Recovered/Not Resolved]
  - Chest discomfort [Not Recovered/Not Resolved]
  - Pruritus [Not Recovered/Not Resolved]
  - Abdominal distension [Recovered/Resolved]
  - Product use in unapproved indication [Unknown]
  - Chromaturia [Not Recovered/Not Resolved]

NARRATIVE: CASE EVENT DATE: 202101
